FAERS Safety Report 22201328 (Version 1)
Quarter: 2023Q2

REPORT INFORMATION
  Report Type: Spontaneous
  Country: FR (occurrence: FR)
  Receive Date: 20230412
  Receipt Date: 20230412
  Transmission Date: 20230722
  Serious: Yes (Other)
  Sender: FDA-Public Use
  Company Number: None

PATIENT
  Age: 35 Year
  Sex: Female
  Weight: 134 kg

DRUGS (2)
  1. SILDENAFIL [Suspect]
     Active Substance: SILDENAFIL
     Indication: Weight decreased
     Dosage: UNK, UNK(1 SACHET OF TREX TEA PER DAY)
     Route: 048
     Dates: start: 202211
  2. SIBUTRAMINE HYDROCHLORIDE MONOHYDRATE [Suspect]
     Active Substance: SIBUTRAMINE HYDROCHLORIDE
     Indication: Weight decreased
     Dosage: UNK, UNK(1 SACHET OF TREX TEA PER DAY)
     Route: 048
     Dates: start: 202211

REACTIONS (3)
  - Weight decreased [Unknown]
  - Loss of libido [Unknown]
  - Tachycardia [Unknown]

NARRATIVE: CASE EVENT DATE: 20221101
